FAERS Safety Report 9473121 (Version 2)
Quarter: 2013Q3

REPORT INFORMATION
  Report Type: Spontaneous
  Country: US (occurrence: US)
  Receive Date: 20130823
  Receipt Date: 20130823
  Transmission Date: 20140515
  Serious: Yes (Other)
  Sender: FDA-Public Use
  Company Number: US-BRISTOL-MYERS SQUIBB COMPANY-17463530

PATIENT
  Age: 61 Year
  Sex: Male
  Weight: 92.97 kg

DRUGS (10)
  1. SPRYCEL [Suspect]
     Indication: CHRONIC MYELOID LEUKAEMIA
     Route: 048
     Dates: start: 201212
  2. IMITREX [Concomitant]
  3. NEURONTIN [Concomitant]
  4. SIMVASTATIN [Concomitant]
  5. DOXAZOSIN [Concomitant]
  6. ACETYLSALICYLIC ACID [Concomitant]
  7. FISH OIL [Concomitant]
  8. PRESERVISION AREDS [Concomitant]
  9. MULTIVITAMIN [Concomitant]
  10. TRILIPIX [Concomitant]

REACTIONS (1)
  - Chest pain [Unknown]
